FAERS Safety Report 19412574 (Version 1)
Quarter: 2021Q2

REPORT INFORMATION
  Report Type: Spontaneous
  Country: CA (occurrence: CA)
  Receive Date: 20210614
  Receipt Date: 20210614
  Transmission Date: 20210717
  Serious: Yes (Other)
  Sender: FDA-Public Use
  Company Number: CA-ACCORD-228235

PATIENT
  Age: 69 Year
  Sex: Female

DRUGS (16)
  1. CANNABIDIOL [Concomitant]
     Active Substance: CANNABIDIOL
  2. LORAZEPAM. [Concomitant]
     Active Substance: LORAZEPAM
  3. SENOKOT [Concomitant]
     Active Substance: SENNOSIDES
  4. RESTORALAX [Concomitant]
     Active Substance: POLYETHYLENE GLYCOL 3350
     Dosage: POWDER FOR SOLUTION ORAL
  5. THEOPHYLLINE [Concomitant]
     Active Substance: THEOPHYLLINE ANHYDROUS
     Dosage: SOLUTION INTRAVENOUS
     Route: 042
  6. ASCORBIC ACID. [Concomitant]
     Active Substance: ASCORBIC ACID
  7. PACLITAXEL/PACLITAXEL LIPOSOME [Suspect]
     Active Substance: PACLITAXEL
     Dosage: SOLUTION INTRAVENOUS
  8. CARBOPLATIN. [Suspect]
     Active Substance: CARBOPLATIN
     Indication: RECURRENT CANCER
     Dosage: 10MG/ML??LIQUID INTRAVENOUS
     Route: 042
  9. MAGNESIUM HYDROXIDE. [Concomitant]
     Active Substance: MAGNESIUM HYDROXIDE
  10. RANITIDINE. [Concomitant]
     Active Substance: RANITIDINE
  11. COLECALCIFEROL [Concomitant]
     Active Substance: CHOLECALCIFEROL
  12. ACETYLSALICYLIC ACID/CAFFEINE/PARACETAMOL [Concomitant]
     Active Substance: ACETAMINOPHEN\ASPIRIN\CAFFEINE
  13. DIPHENHYDRAMINE. [Concomitant]
     Active Substance: DIPHENHYDRAMINE
  14. GRANISETRON [Concomitant]
     Active Substance: GRANISETRON
  15. CODEINE PHOSPHATE/PARACETAMOL [Concomitant]
     Active Substance: ACETAMINOPHEN\CODEINE PHOSPHATE
  16. DEXAMETHASONE. [Concomitant]
     Active Substance: DEXAMETHASONE
     Route: 065

REACTIONS (4)
  - Cough [Recovered/Resolved]
  - Erythema [Recovered/Resolved]
  - Flushing [Recovered/Resolved]
  - Throat tightness [Recovered/Resolved]
